FAERS Safety Report 6238228-0 (Version None)
Quarter: 2009Q2

REPORT INFORMATION
  Report Type: 
  Country: None (occurrence: None)
  Receive Date: 20090618
  Receipt Date: 20090603
  Transmission Date: 20091009
  Serious: Yes (Other)
  Sender: FDA-Public Use
  Company Number: ADE2009-0635

PATIENT
  Age: 48 Year
  Sex: Female

DRUGS (10)
  1. AMOXICILLIN [Suspect]
     Indication: ACUTE SINUSITIS
     Dosage: 875 - BID
     Dates: start: 20090426, end: 20090504
  2. AMOXICILLIN [Suspect]
     Indication: OTITIS MEDIA
     Dosage: 875 - BID
     Dates: start: 20090426, end: 20090504
  3. MONTELUKAST [Concomitant]
  4. CERTRIZINE [Concomitant]
  5. FLUTICASONE [Concomitant]
  6. EPINASTINE [Concomitant]
  7. AZELASTINE HCL [Concomitant]
  8. SYMBICORT [Concomitant]
  9. ALBUTEROL [Concomitant]
  10. DIPHENHYDRAMINE HCL [Concomitant]

REACTIONS (4)
  - ANAPHYLACTIC REACTION [None]
  - ANGIOEDEMA [None]
  - HYPERSENSITIVITY [None]
  - URTICARIA [None]
